FAERS Safety Report 7370217-5 (Version None)
Quarter: 2011Q1

REPORT INFORMATION
  Report Type: 
  Country: None (occurrence: None)
  Receive Date: 20110323
  Receipt Date: 20101026
  Transmission Date: 20110831
  Serious: No
  Sender: FDA-Public Use
  Company Number: US-ASTRAZENECA-2010SE51063

PATIENT
  Age: 74 Year
  Sex: Female
  Weight: 77.1 kg

DRUGS (5)
  1. CLONIDINE [Suspect]
     Route: 048
     Dates: start: 20081201
  2. DILTIAZEM HCL [Suspect]
     Route: 048
     Dates: start: 20080301
  3. LISINOPRIL [Suspect]
     Route: 048
     Dates: start: 20080501
  4. TOPROL-XL [Suspect]
     Route: 048
     Dates: start: 20071101
  5. METOPROLOL SUCCINATE [Suspect]
     Indication: HYPERTENSION
     Dosage: TWO AND HALF TABLETS
     Route: 048
     Dates: start: 20080201

REACTIONS (6)
  - SWELLING [None]
  - HYPERSENSITIVITY [None]
  - PRURITUS [None]
  - URTICARIA [None]
  - RASH [None]
  - COUGH [None]
